FAERS Safety Report 12613969 (Version 7)
Quarter: 2019Q2

REPORT INFORMATION
  Report Type: Spontaneous
  Country: US (occurrence: US)
  Receive Date: 20160802
  Receipt Date: 20190429
  Transmission Date: 20190711
  Serious: No
  Sender: FDA-Public Use
  Company Number: US-PFIZER INC-2016364931

PATIENT
  Age: 56 Year
  Sex: Male

DRUGS (34)
  1. LISINOPRIL. [Concomitant]
     Active Substance: LISINOPRIL
     Dosage: 10 MG, DAILY
     Route: 048
     Dates: start: 20160823
  2. ZINC GLUCONATE [Concomitant]
     Active Substance: ZINC GLUCONATE
     Dosage: 50 MG, DAILY
     Route: 048
  3. CALCIUM CARBONATE. [Concomitant]
     Active Substance: CALCIUM CARBONATE
     Dosage: 1500 MG, DAILY
     Route: 048
  4. VENTOLIN HFA [Concomitant]
     Active Substance: ALBUTEROL SULFATE
     Dosage: AS NEEDED (INHALE 2 PUFFS UP TO EVERY 4 HOURS)
     Dates: start: 20160414
  5. VENTOLIN HFA [Concomitant]
     Active Substance: ALBUTEROL SULFATE
     Dosage: AS NEEDED (INHALE 2 PUFFS UP TO EVERY 4 HOURS)
     Dates: start: 20161107
  6. PSEUDOEPHEDRINE HYDROCHLORIDE. [Concomitant]
     Active Substance: PSEUDOEPHEDRINE HYDROCHLORIDE
     Dosage: AS NEEDED (EVERY 6 HOURS))
     Route: 048
     Dates: start: 20160531
  7. CHERATUSSIN AC [Concomitant]
     Active Substance: CODEINE PHOSPHATE\GUAIFENESIN
     Dosage: CODEINE PHOSPHATE 100MG/5M-GUAIFENESIN 10MG/5ML AS NEEDED (EVERY 6 HOURS)
     Dates: start: 20160531
  8. LISINOPRIL. [Concomitant]
     Active Substance: LISINOPRIL
     Dosage: 10 MG, DAILY
     Route: 048
     Dates: start: 20150908
  9. CYMBALTA [Concomitant]
     Active Substance: DULOXETINE HYDROCHLORIDE
     Indication: PAIN
     Dosage: 60 MG, 2X/DAY
     Route: 048
     Dates: start: 20161107
  10. COMBIVENT RESPIMAT [Concomitant]
     Active Substance: ALBUTEROL SULFATE\IPRATROPIUM BROMIDE
     Dosage: 20-100 MCG/ACT 2X/DAY (INHALE 2 PUFFS BY MOUTH DAILY)
     Route: 048
     Dates: start: 20150928
  11. FISH OIL [Concomitant]
     Active Substance: FISH OIL
     Dosage: 1200 MG, DAILY
     Route: 048
  12. LYRICA [Suspect]
     Active Substance: PREGABALIN
     Indication: NEUROPATHY PERIPHERAL
     Dosage: 100 MG, 3X/DAY (EVERY 8 HOURS)
     Route: 048
  13. CYMBALTA [Concomitant]
     Active Substance: DULOXETINE HYDROCHLORIDE
     Indication: PARAESTHESIA
     Dosage: 60 MG, 2X/DAY
     Route: 048
     Dates: start: 20151109
  14. STELARA [Concomitant]
     Active Substance: USTEKINUMAB
     Dosage: UNK
     Route: 058
  15. PROTOPIC [Concomitant]
     Active Substance: TACROLIMUS
     Dosage: AS DIRECTED, 2X/DAY
     Route: 061
  16. CENTRUM SILVER [Concomitant]
     Active Substance: MINERALS\VITAMINS
     Dosage: 1 DF, DAILY
     Route: 048
  17. OXYCODONE HYDROCHLORIDE. [Concomitant]
     Active Substance: OXYCODONE HYDROCHLORIDE
     Dosage: 1 TABLET AS NEEDED (EVERY 4-6 HOURS)
     Route: 048
     Dates: start: 20160818
  18. ATORVASTATIN CALCIUM. [Concomitant]
     Active Substance: ATORVASTATIN CALCIUM
     Dosage: 20 MG, DAILY
     Route: 048
     Dates: start: 20150918
  19. ATORVASTATIN CALCIUM. [Concomitant]
     Active Substance: ATORVASTATIN CALCIUM
     Dosage: 20 MG, DAILY
     Route: 048
     Dates: start: 20161213
  20. VITAMIN E NATURAL [Concomitant]
     Dosage: 400 IU, DAILY
     Route: 048
  21. CLOBETASOL PROPIONATE. [Concomitant]
     Active Substance: CLOBETASOL PROPIONATE
     Dosage: AS DIRECTED, DAILY
     Route: 061
  22. TESTIM [Concomitant]
     Active Substance: TESTOSTERONE
     Dosage: UNK
  23. METFORMIN HCL [Concomitant]
     Active Substance: METFORMIN HYDROCHLORIDE
     Dosage: 1000 MG, 2X/DAY
     Route: 048
     Dates: start: 20160531
  24. COMBIVENT RESPIMAT [Concomitant]
     Active Substance: ALBUTEROL SULFATE\IPRATROPIUM BROMIDE
     Dosage: 20-100 MCG/ACT 2X/DAY (INHALE 2 PUFFS BY MOUTH DAILY)
     Route: 048
     Dates: start: 20160808
  25. LYRICA [Suspect]
     Active Substance: PREGABALIN
     Indication: PARAESTHESIA
     Dosage: 100MG AS NEEDED (3 X/DAY; 1 CAPSULE ORAL EVERY 8 HOURS)
     Route: 048
     Dates: start: 20110819
  26. VITAMIN D2 [Concomitant]
     Active Substance: ERGOCALCIFEROL
     Dosage: 2000 IU, DAILY
     Route: 048
     Dates: start: 20101227
  27. LYRICA [Suspect]
     Active Substance: PREGABALIN
     Indication: DIABETIC NEUROPATHY
  28. VITAMIN B12 [Concomitant]
     Active Substance: CYANOCOBALAMIN
     Dosage: 0.5 DF, DAILY (1/2 TABLET)
     Route: 048
  29. VITAMIN C PLUS [Concomitant]
     Dosage: 1000 MG, DAILY
     Route: 048
  30. LYRICA [Suspect]
     Active Substance: PREGABALIN
     Indication: PAIN
     Dosage: 100MG 3X/DAY (2 CAPSULES OF 50MG EVERY 8 HOURS)
     Route: 048
     Dates: start: 20170210
  31. METFORMIN HCL [Concomitant]
     Active Substance: METFORMIN HYDROCHLORIDE
     Indication: TYPE 2 DIABETES MELLITUS
     Dosage: 1000 MG, DAILY
     Route: 048
     Dates: start: 20150929
  32. HYDROCORTISONE BUTYRATE. [Concomitant]
     Active Substance: HYDROCORTISONE BUTYRATE
     Dosage: AS DIRECTED, AS NEEDED (DAILY)
     Route: 061
  33. FML FORTE [Concomitant]
     Active Substance: FLUOROMETHOLONE
     Dosage: AS NEEDED (DAILY)
     Route: 047
  34. METRONIDAZOLE. [Concomitant]
     Active Substance: METRONIDAZOLE
     Dosage: AS DIRECTED, AS NEEDED (DAILY)

REACTIONS (11)
  - Gait disturbance [Unknown]
  - Lacrimation increased [Unknown]
  - Therapeutic product effect incomplete [Unknown]
  - Neuralgia [Unknown]
  - Visual impairment [Unknown]
  - Hypoaesthesia [Unknown]
  - Condition aggravated [Unknown]
  - Rash [Unknown]
  - Glycosylated haemoglobin increased [Unknown]
  - Upper respiratory tract infection [Unknown]
  - Blood glucose increased [Unknown]
